FAERS Safety Report 4294367-5 (Version None)
Quarter: 2004Q1

REPORT INFORMATION
  Report Type: 
  Country: None (occurrence: None)
  Receive Date: 20040211
  Receipt Date: 20040128
  Transmission Date: 20041129
  Serious: Yes (Other)
  Sender: FDA-Public Use
  Company Number: USA040157842

PATIENT
  Age: 51 Year
  Sex: Female

DRUGS (3)
  1. EVISTA [Suspect]
     Indication: OSTEOPOROSIS
     Dates: end: 20030501
  2. MULTIVITAMINS NOS (MULTIVITAMINS NOS) [Concomitant]
  3. FOSAMAX [Concomitant]

REACTIONS (1)
  - COMPRESSION FRACTURE [None]
